FAERS Safety Report 8167787-6 (Version None)
Quarter: 2012Q1

REPORT INFORMATION
  Report Type: 
  Country: None (occurrence: None)
  Receive Date: 20120227
  Receipt Date: 20120215
  Transmission Date: 20120608
  Serious: Yes (Death, Hospitalization, Other)
  Sender: FDA-Public Use
  Company Number: DE-ELI_LILLY_AND_COMPANY-DE201202004117

PATIENT
  Age: 69 Year
  Sex: Male

DRUGS (2)
  1. FORTEO [Suspect]
     Indication: OSTEOPOROSIS
     Dosage: UNK, QD
     Route: 058
     Dates: start: 20100528
  2. CALCIUM W/VITAMIN D NOS [Concomitant]
     Dosage: UNK, OTHER

REACTIONS (4)
  - CARDIOPULMONARY FAILURE [None]
  - FRACTURE [None]
  - FALL [None]
  - DYSPNOEA [None]
